FAERS Safety Report 5844561-4 (Version None)
Quarter: 2008Q3

REPORT INFORMATION
  Report Type: 
  Country: None (occurrence: None)
  Receive Date: 20080814
  Receipt Date: 20080813
  Transmission Date: 20090109
  Serious: Yes (Hospitalization)
  Sender: FDA-Public Use
  Company Number: PHHO2002DE06630

PATIENT
  Sex: Male
  Weight: 65 kg

DRUGS (2)
  1. PLACEBO PLACEBO [Suspect]
     Indication: COGNITIVE DISORDER
     Dosage: UNK
     Route: 048
     Dates: start: 19991208, end: 20011221
  2. EXELON [Suspect]
     Dosage: UNSPECIFIED
     Route: 048
     Dates: start: 20011222, end: 20020725

REACTIONS (7)
  - ARRHYTHMIA [None]
  - ATRIAL FIBRILLATION [None]
  - BRADYCARDIA [None]
  - CARDIAC PACEMAKER INSERTION [None]
  - DIZZINESS [None]
  - MITRAL VALVE INCOMPETENCE [None]
  - SICK SINUS SYNDROME [None]
